FAERS Safety Report 7039258 (Version 3)
Quarter: 2014Q2

REPORT INFORMATION
  Report Type: Spontaneous
  Country: US (occurrence: US)
  Receive Date: 20090701
  Receipt Date: 20131018
  Transmission Date: 20141212
  Serious: Yes (Other)
  Sender: FDA-Public Use
  Company Number: US-PFIZER INC-2009229514

PATIENT
  Age: 54 Year
  Sex: Female
  Weight: 59 kg

DRUGS (18)
  1. PROVERA [Suspect]
     Indication: HORMONE REPLACEMENT THERAPY
     Dosage: 5 MG, UNK
     Route: 048
     Dates: start: 199209, end: 1993
  2. PROVERA [Suspect]
     Dosage: UNK
     Route: 048
     Dates: start: 199209, end: 199411
  3. PROVERA [Suspect]
     Dosage: UNK
     Route: 048
     Dates: start: 199610, end: 199701
  4. PROVERA [Suspect]
     Dosage: UNK
     Route: 048
     Dates: start: 199901, end: 200002
  5. PREMARIN [Suspect]
     Indication: HORMONE REPLACEMENT THERAPY
     Dosage: 1.25 MG, UNK
     Route: 048
     Dates: start: 199209, end: 2001
  6. PREMARIN [Suspect]
     Dosage: UNK
     Route: 048
     Dates: start: 199209, end: 199411
  7. PREMARIN [Suspect]
     Dosage: UNK
     Route: 048
     Dates: start: 199610, end: 200103
  8. PREMPRO [Suspect]
     Indication: HORMONE REPLACEMENT THERAPY
     Dosage: UNK
     Route: 048
  9. MEDROXYPROGESTERONE ACETATE [Suspect]
     Indication: HORMONE REPLACEMENT THERAPY
     Dosage: UNK
     Dates: start: 199411, end: 199610
  10. MEDROXYPROGESTERONE ACETATE [Suspect]
     Dosage: UNK
     Dates: start: 199701, end: 199901
  11. MEDROXYPROGESTERONE ACETATE [Suspect]
     Dosage: 5 MG, UNK
     Dates: start: 1997, end: 2001
  12. ACTIVELLE [Suspect]
     Indication: HORMONE REPLACEMENT THERAPY
     Dosage: 1MG/0.5MG
     Dates: start: 2001
  13. ACTIVELLE [Suspect]
     Dosage: UNK
     Dates: start: 200103, end: 200112
  14. ESTRACE [Suspect]
     Indication: HORMONE REPLACEMENT THERAPY
     Dosage: 2 MG, UNK
     Dates: start: 1993, end: 1996
  15. ESTRACE [Suspect]
     Dosage: 1 MG, UNK
     Dates: start: 1993, end: 1996
  16. CLIMARA [Suspect]
     Indication: HORMONE REPLACEMENT THERAPY
     Dosage: 0.1 MG, UNK
     Dates: start: 199610
  17. CYCRIN [Suspect]
     Indication: HORMONE REPLACEMENT THERAPY
     Dosage: UNK
  18. MEDROXYPROGESTERONE ACETATE [Suspect]
     Indication: HORMONE REPLACEMENT THERAPY
     Dosage: UNK
     Dates: start: 200002, end: 200103

REACTIONS (1)
  - Breast cancer female [Unknown]
